FAERS Safety Report 5369023-2 (Version None)
Quarter: 2007Q2

REPORT INFORMATION
  Report Type: 
  Country: None (occurrence: None)
  Receive Date: 20070625
  Receipt Date: 20061128
  Transmission Date: 20071010
  Serious: No
  Sender: FDA-Public Use
  Company Number: US-ASTRAZENECA-2006UW26637

PATIENT
  Age: 75 Year
  Sex: Female

DRUGS (6)
  1. CRESTOR [Suspect]
     Indication: BLOOD CHOLESTEROL INCREASED
     Route: 048
     Dates: start: 20060917, end: 20060925
  2. CRESTOR [Suspect]
     Route: 048
     Dates: start: 20061001, end: 20061016
  3. CRESTOR [Suspect]
     Route: 048
     Dates: start: 20061110, end: 20061112
  4. COUMADIN [Concomitant]
  5. LANOXIN [Concomitant]
  6. LOTREL [Concomitant]

REACTIONS (2)
  - ILL-DEFINED DISORDER [None]
  - MYALGIA [None]
